FAERS Safety Report 8141216-0 (Version None)
Quarter: 2012Q1

REPORT INFORMATION
  Report Type: 
  Country: None (occurrence: None)
  Receive Date: 20120216
  Receipt Date: 20120215
  Transmission Date: 20120608
  Serious: Yes (Hospitalization, Other)
  Sender: FDA-Public Use
  Company Number: DZ-PFIZER INC-2012034150

PATIENT
  Age: 70 Year
  Sex: Male

DRUGS (3)
  1. LOXEN [Concomitant]
     Indication: HYPERTENSION
     Dosage: UNK
  2. SUTENT [Suspect]
     Indication: METASTASES TO LUNG
     Dosage: 50 MG, UNK
     Route: 048
     Dates: start: 20110701
  3. SUTENT [Suspect]
     Indication: RENAL CANCER METASTATIC
     Dosage: 50 MG, UNK
     Route: 048
     Dates: start: 20100901, end: 20110501

REACTIONS (1)
  - PNEUMOTHORAX [None]
